FAERS Safety Report 20725763 (Version 1)
Quarter: 2022Q2

REPORT INFORMATION
  Report Type: Spontaneous
  Country: US (occurrence: US)
  Receive Date: 20220419
  Receipt Date: 20220419
  Transmission Date: 20220721
  Serious: No
  Sender: FDA-Public Use
  Company Number: US-SA-SAC20220414001414

PATIENT
  Sex: Male
  Weight: 64.853 kg

DRUGS (3)
  1. DUPIXENT [Suspect]
     Active Substance: DUPILUMAB
     Indication: Rhinitis allergic
     Dosage: 200 MG, QOW
     Route: 058
     Dates: start: 2019
  2. DUPIXENT [Suspect]
     Active Substance: DUPILUMAB
     Indication: Dermatitis atopic
  3. ADVIL [Concomitant]
     Active Substance: IBUPROFEN

REACTIONS (8)
  - Nasopharyngitis [Unknown]
  - Stomatitis [Unknown]
  - Skin ulcer [Unknown]
  - Rash [Unknown]
  - Condition aggravated [Unknown]
  - Product use in unapproved indication [Unknown]
  - Product use issue [Unknown]
  - Product dose omission issue [Unknown]
